FAERS Safety Report 4758588-7 (Version None)
Quarter: 2005Q3

REPORT INFORMATION
  Report Type: 
  Country: None (occurrence: None)
  Receive Date: 20050826
  Receipt Date: 20050822
  Transmission Date: 20060218
  Serious: No
  Sender: FDA-Public Use
  Company Number: 2005-131793-NL

PATIENT
  Age: 61 Year
  Sex: Male

DRUGS (3)
  1. MIRTAZAPINE [Suspect]
     Indication: DEPRESSION
     Dosage: 30 MG ORAL
     Route: 048
     Dates: start: 20050728, end: 20050731
  2. AMISULPRIDE [Concomitant]
  3. FLUOXETINE [Concomitant]

REACTIONS (1)
  - HICCUPS [None]
